FAERS Safety Report 6483812-2 (Version None)
Quarter: 2009Q4

REPORT INFORMATION
  Report Type: 
  Country: None (occurrence: None)
  Receive Date: 20091209
  Receipt Date: 20090814
  Transmission Date: 20100525
  Serious: No
  Sender: FDA-Public Use
  Company Number: US-AMGEN-KDL346320

PATIENT
  Sex: Female
  Weight: 61.7 kg

DRUGS (2)
  1. ENBREL [Suspect]
     Indication: RHEUMATOID ARTHRITIS
     Route: 058
  2. METHOTREXATE [Concomitant]
     Dates: start: 20050101

REACTIONS (3)
  - ASTHENOPIA [None]
  - ASTIGMATISM [None]
  - DRY EYE [None]
